FAERS Safety Report 12928506 (Version 1)
Quarter: 2016Q4

REPORT INFORMATION
  Report Type: Spontaneous
  Country: GB (occurrence: GB)
  Receive Date: 20161110
  Receipt Date: 20161110
  Transmission Date: 20170207
  Serious: Yes (Other)
  Sender: FDA-Public Use
  Company Number: GB-JNJFOC-20161102618

PATIENT
  Age: 24 Year
  Sex: Male
  Weight: 69 kg

DRUGS (16)
  1. IBUPROFEN. [Suspect]
     Active Substance: IBUPROFEN
     Indication: PRODUCT USED FOR UNKNOWN INDICATION
     Route: 065
     Dates: start: 20161021
  2. BUPRENORPHINE. [Concomitant]
     Active Substance: BUPRENORPHINE
     Indication: PRODUCT USED FOR UNKNOWN INDICATION
     Dosage: VARIABLE DOSE
     Route: 065
     Dates: start: 20161006, end: 20161008
  3. CONCERTA [Concomitant]
     Active Substance: METHYLPHENIDATE HYDROCHLORIDE
     Indication: PRODUCT USED FOR UNKNOWN INDICATION
     Dosage: DOSE: 1 (UNIT NOT REPORTED)
     Route: 065
     Dates: start: 20160715
  4. KALMS [Concomitant]
     Indication: PRODUCT USED FOR UNKNOWN INDICATION
     Dosage: DOSE: 1 (UNIT NOT REPORTED)
     Route: 065
     Dates: start: 20160802, end: 20160809
  5. SALBUTAMOL [Concomitant]
     Active Substance: ALBUTEROL
     Indication: PRODUCT USED FOR UNKNOWN INDICATION
     Dosage: INHALE 1-2 PUFFS UP TO 4 TIMES A DAY
     Route: 065
     Dates: start: 20161013
  6. NAPROXEN. [Concomitant]
     Active Substance: NAPROXEN
     Indication: PRODUCT USED FOR UNKNOWN INDICATION
     Dosage: DOSE: 1 (UNIT NOT REPORTED)
     Route: 065
     Dates: start: 20160726, end: 20160801
  7. PARACETAMOL [Concomitant]
     Active Substance: ACETAMINOPHEN
     Indication: PRODUCT USED FOR UNKNOWN INDICATION
     Dosage: DOSE: 2 (UNIT NOT REPORTED)
     Route: 065
     Dates: start: 20161013, end: 20161020
  8. TERBINAFINE. [Concomitant]
     Active Substance: TERBINAFINE
     Indication: TINEA PEDIS
     Dosage: APPLY ONCE TO TWICE A DAY
     Route: 065
     Dates: start: 20160927, end: 20161004
  9. IBUPROFEN. [Suspect]
     Active Substance: IBUPROFEN
     Route: 065
  10. CLENIL MODULITE [Concomitant]
     Active Substance: BECLOMETHASONE DIPROPIONATE
     Indication: PRODUCT USED FOR UNKNOWN INDICATION
     Dosage: DOSE: 2 (UNIT NOT REPORTED), CUMULATIVE DOSE: 36 (UNIT NOT REPORTED), PUFFS
     Route: 065
     Dates: start: 20161013
  11. LOFEXIDINE [Concomitant]
     Indication: PRODUCT USED FOR UNKNOWN INDICATION
     Dosage: VARIABLE DOSAGE
     Route: 065
     Dates: start: 20160816, end: 20160820
  12. METOCLOPRAMIDE. [Concomitant]
     Active Substance: METOCLOPRAMIDE
     Indication: PRODUCT USED FOR UNKNOWN INDICATION
     Dosage: DOSE: 5 (UNIT NOT REPORTED)
     Route: 065
     Dates: start: 20161013, end: 20161018
  13. PROMETHAZINE HYDROCHLORIDE. [Concomitant]
     Active Substance: PROMETHAZINE HYDROCHLORIDE
     Indication: PRODUCT USED FOR UNKNOWN INDICATION
     Dosage: DOSE: 2 (UNIT NOT REPORTED)
     Route: 065
     Dates: start: 20160818, end: 20160822
  14. ZOPICLONE [Concomitant]
     Active Substance: ZOPICLONE
     Indication: PRODUCT USED FOR UNKNOWN INDICATION
     Dosage: DOSE: 1 (UNIT NOT REPORTED)
     Route: 065
     Dates: start: 20160915, end: 20160918
  15. PEPPERMINT OIL [Concomitant]
     Active Substance: PEPPERMINT OIL
     Indication: PRODUCT USED FOR UNKNOWN INDICATION
     Dosage: DOSE: 1 (DOSE NOT REPORTED)
     Route: 065
     Dates: start: 20161013, end: 20161020
  16. E45 [Concomitant]
     Active Substance: LANOLIN\LIGHT MINERAL OIL\PARAFFIN
     Indication: DRY SKIN
     Dosage: APPLY TO DRY SKIN
     Route: 065
     Dates: start: 20160922, end: 20161006

REACTIONS (1)
  - Dyspnoea [Not Recovered/Not Resolved]

NARRATIVE: CASE EVENT DATE: 20161022
